FAERS Safety Report 9760241 (Version 2)
Quarter: 2015Q3

REPORT INFORMATION
  Report Type: Spontaneous
  Country: US (occurrence: US)
  Receive Date: 20131216
  Receipt Date: 20150806
  Transmission Date: 20151125
  Serious: No
  Sender: FDA-Public Use
  Company Number: US-GILEAD-2010-0028339

PATIENT

DRUGS (7)
  1. DIGOXIN. [Suspect]
     Active Substance: DIGOXIN
  2. WARFARIN [Suspect]
     Active Substance: WARFARIN
  3. LETAIRIS [Suspect]
     Active Substance: AMBRISENTAN
     Indication: PULMONARY ARTERIAL HYPERTENSION
  4. ADCIRCA [Suspect]
     Active Substance: TADALAFIL
  5. PLAQUENIL [Suspect]
     Active Substance: HYDROXYCHLOROQUINE SULFATE
  6. FAMTIDINE [Suspect]
     Active Substance: FAMOTIDINE
  7. LASIX [Suspect]
     Active Substance: FUROSEMIDE

REACTIONS (1)
  - Unevaluable event [Unknown]
